FAERS Safety Report 10307697 (Version 2)
Quarter: 2015Q1

REPORT INFORMATION
  Report Type: Spontaneous
  Country: US (occurrence: US)
  Receive Date: 20140716
  Receipt Date: 20150122
  Transmission Date: 20150720
  Serious: No
  Sender: FDA-Public Use
  Company Number: US-GLAXOSMITHKLINE-A1075184A

PATIENT
  Age: 77 Year
  Sex: Male

DRUGS (5)
  1. WATER PILL [Concomitant]
     Active Substance: UNSPECIFIED INGREDIENT
  2. ANORO ELLIPTA [Suspect]
     Active Substance: UMECLIDINIUM BROMIDE\VILANTEROL TRIFENATATE
     Indication: DYSPNOEA
     Dosage: 1 PUFF(S), QD
     Route: 065
     Dates: start: 20140523
  3. ANORO ELLIPTA [Suspect]
     Active Substance: UMECLIDINIUM BROMIDE\VILANTEROL TRIFENATATE
     Indication: PULMONARY FIBROSIS
     Dosage: UNK
     Dates: start: 2014
  4. BLOOD PRESSURE MED [Concomitant]
  5. RESCUE REMEDY [Concomitant]
     Active Substance: CLEMATIS VITALBA FLOWER\HELIANTHEMUM NUMMULARIUM FLOWER\IMPATIENS GLANDULIFERA FLOWER\ORNITHOGALUM UMBELLATUM\PRUNUS CERASIFERA FLOWER
     Route: 055

REACTIONS (7)
  - Pollakiuria [Unknown]
  - Productive cough [Not Recovered/Not Resolved]
  - Cough [Not Recovered/Not Resolved]
  - Dyspnoea [Not Recovered/Not Resolved]
  - Drug ineffective [Not Recovered/Not Resolved]
  - Herpes zoster [Recovered/Resolved]
  - Off label use [Unknown]

NARRATIVE: CASE EVENT DATE: 20140524
